FAERS Safety Report 8945528 (Version 2)
Quarter: 2013Q1

REPORT INFORMATION
  Report Type: Spontaneous
  Country: US (occurrence: US)
  Receive Date: 20121204
  Receipt Date: 20130102
  Transmission Date: 20140127
  Serious: No
  Sender: FDA-Public Use
  Company Number: US-AMGEN-USASP2012074569

PATIENT
  Age: 45 Year
  Sex: Male

DRUGS (1)
  1. ENBREL [Suspect]
     Indication: RHEUMATOID ARTHRITIS
     Dosage: 50 MG, QWK
     Dates: start: 20120917, end: 20121207

REACTIONS (4)
  - Tuberculin test positive [Not Recovered/Not Resolved]
  - Oropharyngeal pain [Not Recovered/Not Resolved]
  - Cough [Not Recovered/Not Resolved]
  - Ear infection [Not Recovered/Not Resolved]
